FAERS Safety Report 23229965 (Version 1)
Quarter: 2023Q4

REPORT INFORMATION
  Report Type: Spontaneous
  Country: US (occurrence: None)
  Receive Date: 20231127
  Receipt Date: 20231127
  Transmission Date: 20240110
  Serious: No
  Sender: FDA-Public Use
  Company Number: US-ROCHE-3232675

PATIENT
  Sex: Male

DRUGS (1)
  1. TAMIFLU [Suspect]
     Active Substance: OSELTAMIVIR PHOSPHATE
     Indication: Influenza
     Route: 065

REACTIONS (6)
  - Abnormal behaviour [Unknown]
  - Defiant behaviour [Unknown]
  - Confusional state [Unknown]
  - Fatigue [Unknown]
  - Speech disorder [Unknown]
  - Delusion [Unknown]
